FAERS Safety Report 20000224 (Version 1)
Quarter: 2021Q4

REPORT INFORMATION
  Report Type: Report from Study
  Country: IL (occurrence: BR)
  Receive Date: 20211027
  Receipt Date: 20211027
  Transmission Date: 20220303
  Serious: Yes (Hospitalization, Other)
  Sender: FDA-Public Use
  Company Number: IL-NOVARTISPH-NVSC2021BR242934

PATIENT
  Age: 60 Year
  Sex: Female

DRUGS (1)
  1. RYDAPT [Suspect]
     Active Substance: MIDOSTAURIN
     Indication: Mastocytosis
     Dosage: UNK
     Route: 065
     Dates: start: 202008

REACTIONS (4)
  - Tachycardia [Unknown]
  - Haemodynamic instability [Unknown]
  - Systemic mastocytosis [Unknown]
  - Malignant neoplasm progression [Unknown]
